FAERS Safety Report 7042918-X (Version None)
Quarter: 2010Q4

REPORT INFORMATION
  Report Type: 
  Country: None (occurrence: None)
  Receive Date: 20101013
  Receipt Date: 20090819
  Transmission Date: 20110411
  Serious: No
  Sender: FDA-Public Use
  Company Number: US-ASTRAZENECA-2009SE09052

PATIENT
  Age: 62 Year
  Sex: Female

DRUGS (1)
  1. SYMBICORT [Suspect]
     Indication: ASTHMA
     Dosage: 640 UG USED AS TOTAL DAILY DOSE, 4 PUFFS QD FOR 9 DAYS
     Route: 055

REACTIONS (4)
  - HEART RATE INCREASED [None]
  - MYALGIA [None]
  - NERVOUSNESS [None]
  - OROPHARYNGEAL PAIN [None]
